FAERS Safety Report 6864284-2 (Version None)
Quarter: 2010Q3

REPORT INFORMATION
  Report Type: 
  Country: None (occurrence: None)
  Receive Date: 20100721
  Receipt Date: 20080324
  Transmission Date: 20110219
  Serious: No
  Sender: FDA-Public Use
  Company Number: US-PFIZER INC-2008026500

PATIENT
  Sex: Female
  Weight: 74.4 kg

DRUGS (7)
  1. CHANTIX [Suspect]
     Indication: SMOKING CESSATION THERAPY
     Dates: start: 20080315
  2. CYMBALTA [Concomitant]
  3. TRAZODONE HYDROCHLORIDE [Concomitant]
  4. LYRICA [Concomitant]
  5. KLONOPIN [Concomitant]
  6. PROTONIX [Concomitant]
     Indication: GASTRIC DISORDER
  7. CELEBREX [Concomitant]

REACTIONS (3)
  - FATIGUE [None]
  - NAUSEA [None]
  - SOMNOLENCE [None]
